FAERS Safety Report 12135860 (Version 1)
Quarter: 2016Q1

REPORT INFORMATION
  Report Type: Spontaneous
  Country: BR (occurrence: BR)
  Receive Date: 20160302
  Receipt Date: 20160302
  Transmission Date: 20160526
  Serious: Yes (Other)
  Sender: FDA-Public Use
  Company Number: BR-ASTRAZENECA-2016SE19834

PATIENT
  Age: 351 Month
  Sex: Female
  Weight: 54 kg

DRUGS (4)
  1. PRELONE [Concomitant]
     Active Substance: PREDNISOLONE
     Dosage: 2 TABLETS AT LUNCH FOR 5 DAYS
     Dates: start: 20160223
  2. SYMBICORT [Suspect]
     Active Substance: BUDESONIDE\FORMOTEROL FUMARATE DIHYDRATE
     Indication: ASTHMA
     Dosage: 160/4.5 MCG TWO TIMES A DAY
     Route: 055
     Dates: start: 201511
  3. THIORIDAZINE [Concomitant]
     Active Substance: THIORIDAZINE
     Dosage: 5 MG 1 TABLET OD FOR 10 DAYS
     Dates: start: 20160223
  4. AVAMYS [Concomitant]
     Active Substance: FLUTICASONE FUROATE
     Dosage: ONCE DAILY IN ORDER TO BE ADMINISTERED IN HER NOSTRIL
     Route: 045
     Dates: start: 20160223

REACTIONS (2)
  - Intentional product misuse [Recovered/Resolved]
  - Asthmatic crisis [Recovering/Resolving]

NARRATIVE: CASE EVENT DATE: 201511
